FAERS Safety Report 12963803 (Version 1)
Quarter: 2016Q4

REPORT INFORMATION
  Report Type: Spontaneous
  Country: US (occurrence: US)
  Receive Date: 20161122
  Receipt Date: 20161122
  Transmission Date: 20170207
  Serious: No
  Sender: FDA-Public Use
  Company Number: US-GLAXOSMITHKLINE-US2016GSK172420

PATIENT
  Sex: Female

DRUGS (1)
  1. MUPIROCIN. [Suspect]
     Active Substance: MUPIROCIN
     Indication: EYE INFECTION

REACTIONS (4)
  - Drug hypersensitivity [Unknown]
  - Vision blurred [Unknown]
  - Pain [Unknown]
  - Pruritus [Unknown]
